FAERS Safety Report 11723760 (Version 1)
Quarter: 2015Q4

REPORT INFORMATION
  Report Type: Spontaneous
  Country: CO (occurrence: CO)
  Receive Date: 20151111
  Receipt Date: 20151111
  Transmission Date: 20160304
  Serious: Yes (Death)
  Sender: FDA-Public Use
  Company Number: CO-TEVA-608692ACC

PATIENT
  Age: 56 Year
  Sex: Female
  Weight: 63 kg

DRUGS (1)
  1. BENDAMUSTINE HYDROCHLORIDE [Suspect]
     Active Substance: BENDAMUSTINE HYDROCHLORIDE
     Indication: CHRONIC LYMPHOCYTIC LEUKAEMIA
     Dosage: 1 IN 1 MONTH
     Route: 042
     Dates: start: 20150122

REACTIONS (1)
  - Death [Fatal]

NARRATIVE: CASE EVENT DATE: 20151021
